FAERS Safety Report 6284416-7 (Version None)
Quarter: 2009Q3

REPORT INFORMATION
  Report Type: 
  Country: None (occurrence: None)
  Receive Date: 20090727
  Receipt Date: 20090714
  Transmission Date: 20100115
  Serious: Yes (Other)
  Sender: FDA-Public Use
  Company Number: US-ROCHE-644098

PATIENT
  Sex: Male
  Weight: 76.7 kg

DRUGS (2)
  1. ISOTRETINOIN [Suspect]
     Indication: ACNE
     Dosage: DOSE: 20
     Route: 048
     Dates: start: 20090520, end: 20090611
  2. CONCERTA [Concomitant]
     Dosage: DOSE: 27, FREQUENCY: QD
     Route: 048

REACTIONS (1)
  - ANXIETY DISORDER [None]
